FAERS Safety Report 16310390 (Version 5)
Quarter: 2022Q3

REPORT INFORMATION
  Report Type: Spontaneous
  Country: US (occurrence: None)
  Receive Date: 20190514
  Receipt Date: 20220806
  Transmission Date: 20221027
  Serious: Yes (Other)
  Sender: FDA-Public Use
  Company Number: 2019SE67054

PATIENT
  Age: 848 Month
  Sex: Male
  Weight: 106.6 kg

DRUGS (60)
  1. NEXIUM [Suspect]
     Active Substance: ESOMEPRAZOLE MAGNESIUM
     Indication: Gastrooesophageal reflux disease
     Route: 048
     Dates: start: 20070803, end: 20080118
  2. NEXIUM [Suspect]
     Active Substance: ESOMEPRAZOLE MAGNESIUM
     Indication: Gastrooesophageal reflux disease
     Route: 048
     Dates: start: 201001, end: 201112
  3. NEXIUM [Suspect]
     Active Substance: ESOMEPRAZOLE MAGNESIUM
     Indication: Gastrooesophageal reflux disease
     Route: 048
     Dates: start: 20070803, end: 201108
  4. PRILOSEC OTC [Suspect]
     Active Substance: OMEPRAZOLE MAGNESIUM
     Indication: Gastrooesophageal reflux disease
     Route: 048
     Dates: start: 20060622, end: 20070302
  5. PREVACID [Suspect]
     Active Substance: LANSOPRAZOLE
     Indication: Gastrooesophageal reflux disease
     Route: 065
     Dates: start: 20070403, end: 20070702
  6. PREVACID [Suspect]
     Active Substance: LANSOPRAZOLE
     Indication: Gastrooesophageal reflux disease
     Route: 065
     Dates: start: 201001, end: 201112
  7. PREVACID [Suspect]
     Active Substance: LANSOPRAZOLE
     Indication: Gastrooesophageal reflux disease
     Route: 065
     Dates: start: 20070403, end: 20070802
  8. PREVACID [Suspect]
     Active Substance: LANSOPRAZOLE
     Indication: Gastrooesophageal reflux disease
     Dosage: GENERIC
     Route: 065
     Dates: start: 20110818, end: 20190602
  9. PANTOPRAZOLE [Suspect]
     Active Substance: PANTOPRAZOLE
     Indication: Gastrooesophageal reflux disease
     Route: 065
     Dates: start: 20190407, end: 20190910
  10. CLARITIN [Concomitant]
     Active Substance: LORATADINE
     Indication: Multiple allergies
     Dates: start: 20060602, end: 20080103
  11. LORAZEPAM [Concomitant]
     Active Substance: LORAZEPAM
     Indication: Epilepsy
     Dates: start: 20060602, end: 20070702
  12. NOVOLIN NOS [Concomitant]
     Active Substance: INSULIN HUMAN
     Indication: Diabetes mellitus
     Dates: start: 20070601, end: 20071214
  13. TRAMADOL [Concomitant]
     Active Substance: TRAMADOL
     Indication: Pain
     Dates: start: 20071003, end: 20080502
  14. ZETIA [Concomitant]
     Active Substance: EZETIMIBE
     Indication: Blood cholesterol increased
     Dates: start: 20071203, end: 20080319
  15. RANITIDINE [Concomitant]
     Active Substance: RANITIDINE
     Dates: start: 201601, end: 201912
  16. ACTOS [Concomitant]
     Active Substance: PIOGLITAZONE HYDROCHLORIDE
     Dates: start: 20100203
  17. NOVOLOG [Concomitant]
     Active Substance: INSULIN ASPART
     Dates: start: 20101001
  18. CYMBALTA [Concomitant]
     Active Substance: DULOXETINE HYDROCHLORIDE
     Dates: start: 20101001
  19. TRICOR [Concomitant]
     Active Substance: FENOFIBRATE
     Dates: start: 20100305
  20. LUNESTA [Concomitant]
     Active Substance: ESZOPICLONE
     Dates: start: 20100203
  21. ALPRAZOLAM [Concomitant]
     Active Substance: ALPRAZOLAM
     Dates: start: 20100303
  22. ATACAND HCT [Concomitant]
     Active Substance: CANDESARTAN CILEXETIL\HYDROCHLOROTHIAZIDE
     Dates: start: 20100114
  23. LIPITOR [Concomitant]
     Active Substance: ATORVASTATIN CALCIUM
     Indication: Blood cholesterol abnormal
     Dates: start: 20060803, end: 20111203
  24. METOPROLOL SUCCINATE [Concomitant]
     Active Substance: METOPROLOL SUCCINATE
  25. GABAPENTIN [Concomitant]
     Active Substance: GABAPENTIN
  26. DIOVAN HCT [Concomitant]
     Active Substance: HYDROCHLOROTHIAZIDE\VALSARTAN
  27. METFORMIN [Concomitant]
     Active Substance: METFORMIN HYDROCHLORIDE
  28. DICLOFENAC [Concomitant]
     Active Substance: DICLOFENAC
  29. CLONAZEPAM [Concomitant]
     Active Substance: CLONAZEPAM
  30. HYDROCHLOROTHIAZIDE [Concomitant]
     Active Substance: HYDROCHLOROTHIAZIDE
  31. JANUVIA [Concomitant]
     Active Substance: SITAGLIPTIN PHOSPHATE
  32. HUMALOG [Concomitant]
     Active Substance: INSULIN LISPRO
  33. POLYETHYLENE GLYCOLS [Concomitant]
     Active Substance: POLYETHYLENE GLYCOLS
  34. NYSTATIN [Concomitant]
     Active Substance: NYSTATIN
  35. TRADJENTA [Concomitant]
     Active Substance: LINAGLIPTIN
  36. ZOLPIDEM TARTRATE [Concomitant]
     Active Substance: ZOLPIDEM TARTRATE
     Dates: start: 20150324
  37. KETOCONAZOLE [Concomitant]
     Active Substance: KETOCONAZOLE
  38. NYSTOP [Concomitant]
     Active Substance: NYSTATIN
  39. LOSARTAN [Concomitant]
     Active Substance: LOSARTAN
  40. MECLIZINE [Concomitant]
     Active Substance: MECLIZINE HYDROCHLORIDE
  41. NIASPAN [Concomitant]
     Active Substance: NIACIN
  42. GLYBURIDE [Concomitant]
     Active Substance: GLYBURIDE
  43. GEMFIBROZIL [Concomitant]
     Active Substance: GEMFIBROZIL
  44. CLONIDINE [Concomitant]
     Active Substance: CLONIDINE
  45. CEPHALEXIN [Concomitant]
     Active Substance: CEPHALEXIN
  46. TEMAZEPAM [Concomitant]
     Active Substance: TEMAZEPAM
  47. IRBESARTAN [Concomitant]
     Active Substance: IRBESARTAN
  48. SERTRALINE [Concomitant]
     Active Substance: SERTRALINE HYDROCHLORIDE
  49. LEVETIRACETAM [Concomitant]
     Active Substance: LEVETIRACETAM
  50. DONEPEZIL [Concomitant]
     Active Substance: DONEPEZIL
  51. CARBIDOPA [Concomitant]
     Active Substance: CARBIDOPA
  52. AMLODIPINE [Concomitant]
     Active Substance: AMLODIPINE BESYLATE
  53. LYRICA [Concomitant]
     Active Substance: PREGABALIN
  54. DIOVAN [Concomitant]
     Active Substance: VALSARTAN
     Indication: Blood pressure measurement
     Dates: start: 20100225, end: 20120512
  55. LEVOFLOXACIN [Concomitant]
     Active Substance: LEVOFLOXACIN
     Indication: Infection
     Dates: start: 20141030, end: 20141119
  56. VITAMIN D [Concomitant]
     Active Substance: VITAMIN D NOS
     Indication: Nutritional supplementation
  57. FISH OIL [Concomitant]
     Active Substance: FISH OIL
     Indication: Nutritional supplementation
  58. TAGAMET HB [Concomitant]
     Active Substance: CIMETIDINE
  59. TUMS [Concomitant]
     Active Substance: CALCIUM CARBONATE
  60. ALKA-SELTZER [Concomitant]
     Active Substance: ANHYDROUS CITRIC ACID\ASPIRIN\SODIUM BICARBONATE

REACTIONS (2)
  - Chronic kidney disease [Not Recovered/Not Resolved]
  - End stage renal disease [Unknown]

NARRATIVE: CASE EVENT DATE: 20150101
